FAERS Safety Report 5801768-X (Version None)
Quarter: 2008Q3

REPORT INFORMATION
  Report Type: 
  Country: None (occurrence: None)
  Receive Date: 20080703
  Receipt Date: 20080703
  Transmission Date: 20090109
  Serious: Yes (Hospitalization)
  Sender: FDA-Public Use
  Company Number: None

PATIENT
  Sex: Male
  Weight: 56.4 kg

DRUGS (12)
  1. LENALIDOMIDE [Suspect]
     Indication: MULTIPLE MYELOMA
     Dosage: 25MG QD X 21 DAYS/MO PO
     Route: 048
     Dates: start: 20080611, end: 20080629
  2. DEXAMETHASONE [Suspect]
     Dosage: 40MG DAYS 1,8,15,+22 PO
     Route: 048
     Dates: start: 20080611
  3. DEXAMETHASONE [Suspect]
     Dosage: 40MG DAYS 1,8,15,+22 PO
     Route: 048
     Dates: start: 20080618
  4. DEXAMETHASONE [Suspect]
     Dosage: 40MG DAYS 1,8,15,+22 PO
     Route: 048
     Dates: start: 20080625
  5. OXYCONTIN [Concomitant]
  6. PRILOSEC [Concomitant]
  7. BACTRIM DS [Concomitant]
  8. ARANESP [Concomitant]
  9. MIRALAX [Concomitant]
  10. OXYCODONE HCL [Concomitant]
  11. RED BLOOD CELLS [Concomitant]
  12. NSS [Concomitant]

REACTIONS (9)
  - ALANINE AMINOTRANSFERASE INCREASED [None]
  - ASPARTATE AMINOTRANSFERASE INCREASED [None]
  - BLOOD ALKALINE PHOSPHATASE INCREASED [None]
  - BLOOD CREATININE INCREASED [None]
  - BLOOD PHOSPHORUS INCREASED [None]
  - GAMMA-GLUTAMYLTRANSFERASE INCREASED [None]
  - HAEMATOCRIT DECREASED [None]
  - HAEMOGLOBIN DECREASED [None]
  - REFUSAL OF TREATMENT BY PATIENT [None]
